FAERS Safety Report 5144814-1 (Version None)
Quarter: 2006Q4

REPORT INFORMATION
  Report Type: 
  Country: None (occurrence: None)
  Receive Date: 20061103
  Receipt Date: 20061103
  Transmission Date: 20070319
  Serious: No
  Sender: FDA-Public Use
  Company Number: None

PATIENT
  Age: 46 Year
  Sex: Male

DRUGS (2)
  1. VANCOMYCIN [Suspect]
     Indication: BRAIN ABSCESS
     Dosage: 1500MG EVERY 12  HOURS IV
     Route: 042
     Dates: start: 20060918, end: 20060924
  2. TICARCILLIN [Suspect]

REACTIONS (2)
  - FLUID INTAKE REDUCED [None]
  - RENAL FAILURE ACUTE [None]
